FAERS Safety Report 5084019-6 (Version None)
Quarter: 2006Q3

REPORT INFORMATION
  Report Type: 
  Country: None (occurrence: None)
  Receive Date: 20060815
  Receipt Date: 20060807
  Transmission Date: 20061208
  Serious: Yes (Hospitalization, Other)
  Sender: FDA-Public Use
  Company Number: HQWYE248316JUN06

PATIENT
  Age: 15 Year
  Sex: Male

DRUGS (4)
  1. EFFEXOR XR [Suspect]
     Indication: ANXIETY
     Dosage: 75 MG, ORAL; ORAL
     Route: 048
     Dates: start: 20060604, end: 20060612
  2. EFFEXOR XR [Suspect]
     Indication: DEPRESSION
     Dosage: 75 MG, ORAL; ORAL
     Route: 048
     Dates: start: 20060604, end: 20060612
  3. EFFEXOR XR [Suspect]
     Indication: ANXIETY
     Dosage: 75 MG, ORAL; ORAL
     Route: 048
     Dates: start: 20060613, end: 20060614
  4. EFFEXOR XR [Suspect]
     Indication: DEPRESSION
     Dosage: 75 MG, ORAL; ORAL
     Route: 048
     Dates: start: 20060613, end: 20060614

REACTIONS (1)
  - CONVULSION [None]
